FAERS Safety Report 9601306 (Version 1)
Quarter: 2013Q4

REPORT INFORMATION
  Report Type: Spontaneous
  Country: FR (occurrence: FR)
  Receive Date: 20131006
  Receipt Date: 20131006
  Transmission Date: 20140711
  Serious: Yes (Hospitalization)
  Sender: FDA-Public Use
  Company Number: FR-ROCHE-1283696

PATIENT
  Age: 75 Year
  Sex: Female

DRUGS (1)
  1. ZELBORAF [Suspect]
     Indication: PRODUCT USED FOR UNKNOWN INDICATION
     Route: 065

REACTIONS (1)
  - Drug reaction with eosinophilia and systemic symptoms [Unknown]
